FAERS Safety Report 6158617-2 (Version None)
Quarter: 2009Q2

REPORT INFORMATION
  Report Type: 
  Country: None (occurrence: None)
  Receive Date: 20090417
  Receipt Date: 20090413
  Transmission Date: 20091009
  Serious: Yes (Death, Other)
  Sender: FDA-Public Use
  Company Number: PT-BAYER-200918396GPV

PATIENT
  Age: 89 Year
  Sex: Female
  Weight: 55 kg

DRUGS (3)
  1. NEXAVAR [Suspect]
     Indication: HEPATIC NEOPLASM MALIGNANT
     Route: 048
     Dates: start: 20090306, end: 20090313
  2. FOLIC ACID [Concomitant]
     Indication: DRUG USE FOR UNKNOWN INDICATION
     Route: 048
  3. DONEPEZIL HYDROCHLORIDE [Concomitant]
     Indication: DRUG USE FOR UNKNOWN INDICATION
     Route: 048

REACTIONS (8)
  - ASTHENIA [None]
  - COMA [None]
  - DEATH [None]
  - DEHYDRATION [None]
  - FATIGUE [None]
  - HAEMOCONCENTRATION [None]
  - HYPERTENSION [None]
  - NAUSEA [None]
